FAERS Safety Report 19370163 (Version 4)
Quarter: 2021Q4

REPORT INFORMATION
  Report Type: Report from Study
  Country: US (occurrence: US)
  Receive Date: 20210603
  Receipt Date: 20211214
  Transmission Date: 20220303
  Serious: No
  Sender: FDA-Public Use
  Company Number: NVSC2021US118217

PATIENT
  Sex: Female

DRUGS (1)
  1. ENTRESTO [Suspect]
     Active Substance: SACUBITRIL\VALSARTAN
     Indication: Product used for unknown indication
     Dosage: 1 DF, BID (24/26 MG)
     Route: 048

REACTIONS (7)
  - Vitreous floaters [Unknown]
  - Muscle spasms [Unknown]
  - Amnesia [Unknown]
  - Product dose omission issue [Unknown]
  - Memory impairment [Unknown]
  - Weight increased [Unknown]
  - Malaise [Unknown]
